FAERS Safety Report 14305405 (Version 2)
Quarter: 2018Q1

REPORT INFORMATION
  Report Type: Spontaneous
  Country: US (occurrence: US)
  Receive Date: 20171219
  Receipt Date: 20180126
  Transmission Date: 20180509
  Serious: Yes (Other)
  Sender: FDA-Public Use
  Company Number: US-OTSUKA-15620693

PATIENT
  Age: 81 Year
  Sex: Male

DRUGS (2)
  1. ABILIFY [Suspect]
     Active Substance: ARIPIPRAZOLE
     Indication: HALLUCINATION
     Dosage: INITIALLY 5MG  FEB2011-HALF OF A 5MG:2WEEKS AND AGAIN 5MG  12MAR2011 BACK TO HALF OF A 5MG.
     Route: 065
     Dates: start: 20110125
  2. ABILIFY [Suspect]
     Active Substance: ARIPIPRAZOLE
     Indication: DEMENTIA

REACTIONS (4)
  - Tremor [Recovered/Resolved]
  - Fatigue [Recovered/Resolved]
  - Wrong technique in product usage process [Unknown]
  - Hallucination, auditory [Recovered/Resolved]

NARRATIVE: CASE EVENT DATE: 2011
